FAERS Safety Report 4594334-8 (Version None)
Quarter: 2005Q1

REPORT INFORMATION
  Report Type: 
  Country: None (occurrence: None)
  Receive Date: 20050301
  Receipt Date: 20041019
  Transmission Date: 20050727
  Serious: No
  Sender: FDA-Public Use
  Company Number: US-GLAXOSMITHKLINE-A0530374A

PATIENT
  Age: 62 Year
  Sex: Female

DRUGS (10)
  1. VALTREX [Suspect]
     Dosage: 500MG PER DAY
     Route: 048
  2. PREMARIN [Concomitant]
  3. EFFEXOR [Concomitant]
  4. UNKNOWN MEDICATION [Concomitant]
     Route: 065
  5. ZANTAC [Concomitant]
  6. NAUTAMINE [Concomitant]
     Route: 065
  7. VITAMIN B COMPLEX CAP [Concomitant]
     Route: 065
  8. VIOXX [Concomitant]
  9. VITAMIN C [Concomitant]
     Route: 065
  10. VITAMIN E [Concomitant]
     Route: 065

REACTIONS (1)
  - HERPES VIRUS INFECTION [None]
